FAERS Safety Report 7824427-0 (Version None)
Quarter: 2011Q4

REPORT INFORMATION
  Report Type: 
  Country: None (occurrence: None)
  Receive Date: 20111014
  Receipt Date: 20110927
  Transmission Date: 20120403
  Serious: Yes (Hospitalization)
  Sender: FDA-Public Use
  Company Number: US-2011-10747

PATIENT
  Age: 61 Year
  Sex: Male

DRUGS (7)
  1. ALFUZOSIN HYDROCHLORIDE [Concomitant]
  2. LYRICA [Concomitant]
  3. LEXOMIL (BROMAZEPAM) [Concomitant]
  4. BUSULFEX [Suspect]
     Dosage: , DAILY DOSE, INTRAVENOUS
     Route: 042
     Dates: start: 20110907, end: 20110908
  5. CYCLOSPORINE [Concomitant]
  6. FLUDARABINE PHOSPHATE [Suspect]
     Indication: STEM CELL TRANSPLANT
     Dosage: ,INTRAVENOUS
     Route: 042
     Dates: start: 20110906, end: 20110910
  7. THYMOGLOBULIN [Concomitant]

REACTIONS (9)
  - ACUTE PULMONARY OEDEMA [None]
  - ENTEROCOCCUS TEST POSITIVE [None]
  - BRAIN NATRIURETIC PEPTIDE INCREASED [None]
  - CYTOLYTIC HEPATITIS [None]
  - PROTHROMBIN TIME PROLONGED [None]
  - PROTHROMBIN TIME SHORTENED [None]
  - CHOLESTASIS [None]
  - ACUTE RESPIRATORY DISTRESS SYNDROME [None]
  - SEPSIS [None]
